FAERS Safety Report 20106444 (Version 2)
Quarter: 2021Q4

REPORT INFORMATION
  Report Type: Spontaneous
  Country: FR (occurrence: FR)
  Receive Date: 20211124
  Receipt Date: 20211130
  Transmission Date: 20220303
  Serious: Yes (Disabling)
  Sender: FDA-Public Use
  Company Number: FR-ASTELLAS-2021US044667

PATIENT
  Age: 78 Year
  Sex: Male

DRUGS (11)
  1. XTANDI [Suspect]
     Active Substance: ENZALUTAMIDE
     Indication: Hormone-refractory prostate cancer
     Route: 048
     Dates: start: 20201105, end: 20201115
  2. TRAMADOL [Concomitant]
     Active Substance: TRAMADOL
     Indication: Product used for unknown indication
     Dosage: 1 DF, TWICE DAILY (1 IN THE MORNING AND 1 IN THE EVENING)
     Route: 065
  3. TRAMADOL [Concomitant]
     Active Substance: TRAMADOL
     Indication: Product used for unknown indication
     Dosage: UNK UNK, UNKNOWN FREQ.
     Route: 065
  4. ZOPICLONE [Concomitant]
     Active Substance: ZOPICLONE
     Indication: Product used for unknown indication
     Dosage: 1 DF, ONCE DAILY (1 IN THE EVENING)
     Route: 065
  5. BILASTINE [Concomitant]
     Active Substance: BILASTINE
     Indication: Product used for unknown indication
     Dosage: 1 DF, ONCE DAILY (1 IN THE MORNING)
     Route: 065
  6. ACETAMINOPHEN [Concomitant]
     Active Substance: ACETAMINOPHEN
     Indication: Product used for unknown indication
     Dosage: UNK UNK, UNKNOWN FREQ.
     Route: 065
  7. ESOMEPRAZOLE [Concomitant]
     Active Substance: ESOMEPRAZOLE
     Indication: Product used for unknown indication
     Dosage: 1 DF, ONCE DAILY (1 IN THE MORNING)
     Route: 065
  8. INDAPAMIDE\PERINDOPRIL [Concomitant]
     Active Substance: INDAPAMIDE\PERINDOPRIL
     Indication: Product used for unknown indication
     Dosage: 1 DF, ONCE DAILY (1 IN THE MORNING)
     Route: 065
  9. PRAMIPEXOLE [Concomitant]
     Active Substance: PRAMIPEXOLE
     Indication: Product used for unknown indication
     Dosage: 1 DF, ONCE DAILY (1 IN THE EVENING)
     Route: 065
  10. LIPTRUZET [Concomitant]
     Active Substance: ATORVASTATIN CALCIUM\EZETIMIBE
     Indication: Product used for unknown indication
     Dosage: 1 DF, ONCE DAILY (1 IN THE EVENING)
     Route: 065
  11. TAMSULOSIN [Concomitant]
     Active Substance: TAMSULOSIN
     Indication: Product used for unknown indication
     Dosage: 1 DF, ONCE DAILY (1 IN THE MORNING)
     Route: 065

REACTIONS (1)
  - Generalised oedema [Recovered/Resolved]

NARRATIVE: CASE EVENT DATE: 20201109
